FAERS Safety Report 6062720-5 (Version None)
Quarter: 2009Q1

REPORT INFORMATION
  Report Type: 
  Country: None (occurrence: None)
  Receive Date: 20090203
  Receipt Date: 20090126
  Transmission Date: 20090719
  Serious: Yes (Other)
  Sender: FDA-Public Use
  Company Number: US-ABBOTT-09P-163-0499793-00

PATIENT
  Age: 18 Year
  Sex: Female
  Weight: 60.8 kg

DRUGS (1)
  1. HUMIRA [Suspect]
     Indication: SPONDYLOARTHROPATHY
     Route: 058

REACTIONS (1)
  - DERMATITIS PSORIASIFORM [None]
